FAERS Safety Report 8000564-5 (Version None)
Quarter: 2011Q4

REPORT INFORMATION
  Report Type: 
  Country: None (occurrence: None)
  Receive Date: 20111219
  Receipt Date: 20111208
  Transmission Date: 20120403
  Serious: Yes (Hospitalization)
  Sender: FDA-Public Use
  Company Number: DKLU1074014

PATIENT
  Age: 56 Year
  Sex: Female

DRUGS (4)
  1. ONFI [Suspect]
     Indication: PRODUCT USED FOR UNKNOWN INDICATION
     Dosage: 5 MG MILLIGRAM(S), 1 IN 1 D, ORAL
     Route: 048
     Dates: start: 20110815, end: 20110923
  2. VEMURAFENIB (VEMURAFENIB) (960 MG, TABLET) [Suspect]
     Indication: METASTATIC MALIGNANT MELANOMA
     Dosage: 960 MG MILLIGRAM(S), 1 IN 1 D, ORAL
     Route: 048
     Dates: start: 20110829, end: 20110920
  3. LEVETIRACETAM [Suspect]
     Indication: PRODUCT USED FOR UNKNOWN INDICATION
     Dosage: 500 MG MILLIGRAM(S), 2 IN 1 D, ORAL
     Route: 048
     Dates: start: 20110815
  4. MUPHORAN (FOTEMUSTINE) (165 MG) [Suspect]
     Indication: METASTATIC MALIGNANT MELANOMA
     Dosage: EVERY CYCLE, INTRAVENOUS (NOT OTHERWISE SPECIFIED)
     Route: 042
     Dates: start: 20110818, end: 20110901

REACTIONS (3)
  - LEUKOPENIA [None]
  - RASH MACULO-PAPULAR [None]
  - THROMBOCYTOPENIA [None]
